FAERS Safety Report 8272919-5 (Version None)
Quarter: 2012Q2

REPORT INFORMATION
  Report Type: 
  Country: None (occurrence: None)
  Receive Date: 20120406
  Receipt Date: 20120406
  Transmission Date: 20120825
  Serious: Yes (Life-Threatening)
  Sender: FDA-Public Use
  Company Number: None

PATIENT
  Sex: Male
  Weight: 90.7194 kg

DRUGS (1)
  1. CLARITHROMYCIN [Suspect]
     Dosage: ONE 12 HRS

REACTIONS (3)
  - COUGH [None]
  - DRUG INTOLERANCE [None]
  - INTERCEPTED DRUG DISPENSING ERROR [None]
